FAERS Safety Report 5126910-8 (Version None)
Quarter: 2006Q4

REPORT INFORMATION
  Report Type: 
  Country: None (occurrence: None)
  Receive Date: 20061011
  Receipt Date: 20061011
  Transmission Date: 20070319
  Serious: Yes (Hospitalization)
  Sender: FDA-Public Use
  Company Number: None

PATIENT
  Age: 45 Year
  Sex: Female
  Weight: 47.6277 kg

DRUGS (90)
  1. ABRAXANE [Suspect]
     Indication: OVARIAN CANCER
     Dosage: 145.0MG D1,D8,D15 042
     Dates: start: 20060330
  2. ABRAXANE [Suspect]
     Indication: RECURRENT CANCER
     Dosage: 145.0MG D1,D8,D15 042
     Dates: start: 20060330
  3. CARBOPLATIN [Suspect]
     Indication: OVARIAN CANCER
     Dosage: 465MG/M2 D1 042
     Dates: start: 20060315
  4. CARBOPLATIN [Suspect]
     Indication: RECURRENT CANCER
     Dosage: 465MG/M2 D1 042
     Dates: start: 20060315
  5. DOXIL [Suspect]
     Indication: OVARIAN CANCER
     Dosage: 58.0MG/M2 Q28 DAYS 042
     Dates: start: 20060525
  6. DOXIL [Suspect]
     Indication: RECURRENT CANCER
     Dosage: 58.0MG/M2 Q28 DAYS 042
     Dates: start: 20060525
  7. AMITRIPTYLINE (ELAVIL) [Concomitant]
  8. LEVAQUIN [Concomitant]
  9. D5/0.45NS-KCL20MEQ [Concomitant]
  10. SOD CL 0.9% (ZOFRAN) [Concomitant]
  11. HEPARIN (HEPARIN FLUSH) [Concomitant]
  12. TRIAMTERENE (DYAZIDE) [Concomitant]
  13. COUMODIN [Concomitant]
  14. VIVELLE [Concomitant]
  15. LASIX [Concomitant]
  16. DIPHENHYDRAMINE (BENADRYL) ORAL [Concomitant]
  17. DIPHENHYDRAMINE (BENADRYL) INTRAVENOUS [Concomitant]
  18. ACTAMINOPHEN (TYLENOL) ORAL [Concomitant]
  19. ACTAMINOPHEN (TYLENOL) RECTAL [Concomitant]
  20. NALOXONE (NARCAN) [Concomitant]
  21. REGLAN [Concomitant]
  22. ONDANSETRON HCL INJECTION (ZOFRAN) [Concomitant]
  23. AMBIEN [Concomitant]
  24. HYDROMORPHONE HCL [Concomitant]
  25. OXYCODONE (ROXICET) [Concomitant]
  26. OXYCODONE (PERCOCET) [Concomitant]
  27. DEXTROSE [Concomitant]
  28. KCL TAB [Concomitant]
  29. POTASSIUM [Concomitant]
  30. LOVENOX [Concomitant]
  31. BLD GLUCOSE [Concomitant]
  32. SOD CL0.9% [Concomitant]
  33. PANTOPRAZOLE (PROTONIX) [Concomitant]
  34. HYPER AD CENTR [Concomitant]
  35. FAT EMULSION [Concomitant]
  36. PEPCID [Concomitant]
  37. ALTRPLASE RECOMB (TPA) [Concomitant]
  38. SYRINGE 60ML [Concomitant]
  39. PROMTHAZINE (PHENERGAN) [Concomitant]
  40. DILAUDID [Concomitant]
  41. FENTANYL TRANSDERMAL SYSTEM [Concomitant]
  42. PIPERACILLIN-TAZ (ZOSYN) [Concomitant]
  43. VANCOMYCIN [Concomitant]
  44. LORAZEPAM INJECTION (ATIVAN) [Concomitant]
  45. TYLENOL SUPPOSITORY [Concomitant]
  46. DIPHENHYDRAMINE (BENADRYL) [Concomitant]
  47. AMBIEN [Concomitant]
  48. HYDROMORPHONE INJECTION [Concomitant]
  49. PHENERGAN [Concomitant]
  50. CONCIDES [Concomitant]
  51. HYPERAL AD CENTR [Concomitant]
  52. ALBUMIN (HUMAN) [Concomitant]
  53. MAZZIDE [Concomitant]
  54. COUMADIN [Concomitant]
  55. ACCUV BID [Concomitant]
  56. ATIVAN [Concomitant]
  57. ZOFRAN [Concomitant]
  58. ESTRADIOL (VIVELLE) [Concomitant]
  59. D5/045NS-KCL MEQ [Concomitant]
  60. PIPERACILLIN TAZ [Concomitant]
  61. VANCOMYCIN [Concomitant]
  62. ZOSYN [Concomitant]
  63. GEMTAMICIN [Concomitant]
  64. DAPTOMYCIN [Concomitant]
  65. AMBIEN [Concomitant]
  66. ACETAMINOPHEN TABLET (TYLENOL) [Concomitant]
  67. OXCODONE (ROXICET) [Concomitant]
  68. PROMETHAZINE (PHENERGAN) [Concomitant]
  69. SOD CL 0.9% [Concomitant]
  70. PREMED WITH BENADRYL [Concomitant]
  71. MAALOX FAST BLOCKER [Concomitant]
  72. PROTONIX [Concomitant]
  73. TROUGH [Concomitant]
  74. AMPICILLIN SODIUM [Concomitant]
  75. OXYCODONE-ACET [Concomitant]
  76. D5/0.45NACL [Concomitant]
  77. PANTOPRAZOLE SODIUM [Concomitant]
  78. ESTRADERM [Concomitant]
  79. DECADRON [Concomitant]
  80. TAGAMET [Concomitant]
  81. EMMEND [Concomitant]
  82. DOXIL [Concomitant]
  83. ZOLPIDEM TARTRATE [Concomitant]
  84. AMITRIPTYLINE (ELVAIL) [Concomitant]
  85. FAT EMULSION 20% [Concomitant]
  86. HEPARIN LOCK-FLUSH [Concomitant]
  87. NEUPOGEN [Concomitant]
  88. ARANESP [Concomitant]
  89. ABRAXANE [Concomitant]
  90. CARBOPLATIN [Concomitant]

REACTIONS (5)
  - ABDOMINAL DISTENSION [None]
  - DYSPNOEA [None]
  - NAUSEA [None]
  - PYREXIA [None]
  - VOMITING [None]
